FAERS Safety Report 16970043 (Version 1)
Quarter: 2019Q4

REPORT INFORMATION
  Report Type: Spontaneous
  Country: US (occurrence: US)
  Receive Date: 20190911
  Receipt Date: 20190911
  Transmission Date: 20200122
  Serious: Yes (Hospitalization)
  Sender: FDA-Public Use
  Company Number: None

PATIENT
  Age: 60 Year
  Sex: Female

DRUGS (4)
  1. MURO [Concomitant]
  2. OFLOXACIN. [Concomitant]
     Active Substance: OFLOXACIN
  3. METHOTREXATE. [Concomitant]
     Active Substance: METHOTREXATE
  4. XELJANZ XR [Suspect]
     Active Substance: TOFACITINIB CITRATE
     Indication: RHEUMATOID ARTHRITIS
     Route: 048
     Dates: start: 20180912

REACTIONS (2)
  - Gastrointestinal inflammation [None]
  - Large intestine infection [None]

NARRATIVE: CASE EVENT DATE: 20190905
